FAERS Safety Report 18454872 (Version 2)
Quarter: 2020Q4

REPORT INFORMATION
  Report Type: Spontaneous
  Country: IT (occurrence: IT)
  Receive Date: 20201103
  Receipt Date: 20201211
  Transmission Date: 20210114
  Serious: Yes (Other)
  Sender: FDA-Public Use
  Company Number: IT-BIOGEN-2020BI00939852

PATIENT

DRUGS (1)
  1. TYSABRI [Suspect]
     Active Substance: NATALIZUMAB
     Indication: MATERNAL EXPOSURE TIMING UNSPECIFIED
     Dosage: 1 (DOSE NUMBER) DOSAGE FORMS (DOSE UNIT)
     Route: 042
     Dates: end: 20200406

REACTIONS (1)
  - Foetal malformation [Recovered/Resolved]

NARRATIVE: CASE EVENT DATE: 20201005
